FAERS Safety Report 20616682 (Version 1)
Quarter: 2022Q1

REPORT INFORMATION
  Report Type: Spontaneous
  Country: US (occurrence: None)
  Receive Date: 20220321
  Receipt Date: 20220321
  Transmission Date: 20220423
  Serious: Yes (Hospitalization)
  Sender: FDA-Public Use
  Company Number: None

PATIENT
  Age: 70 Year
  Sex: Female
  Weight: 71.21 kg

DRUGS (16)
  1. AIMOVIG [Suspect]
     Active Substance: ERENUMAB-AOOE
     Indication: Migraine
     Dosage: FREQUENCY : ONCE;?OTHER ROUTE : INJECTION;?
     Route: 050
     Dates: start: 20220128, end: 20220128
  2. Diltazen [Concomitant]
  3. LETROZOLE [Concomitant]
     Active Substance: LETROZOLE
  4. Questrain powder [Concomitant]
  5. NEXIUM [Concomitant]
     Active Substance: ESOMEPRAZOLE MAGNESIUM
  6. ELIQUIS [Concomitant]
     Active Substance: APIXABAN
  7. pravastation [Concomitant]
  8. FISH OIL [Concomitant]
     Active Substance: FISH OIL
  9. CALCIUM [Concomitant]
  10. VITAMIN D3 [Concomitant]
     Active Substance: CHOLECALCIFEROL
  11. FERROUS SULFATE [Concomitant]
     Active Substance: FERROUS SULFATE
  12. frolic acid [Concomitant]
  13. proair inhalor [Concomitant]
  14. mag [Concomitant]
  15. FLONASE [Concomitant]
     Active Substance: FLUTICASONE PROPIONATE
  16. Refresh Plus Eye Drops [Concomitant]

REACTIONS (7)
  - Dizziness [None]
  - Hypoaesthesia [None]
  - Abdominal discomfort [None]
  - Malaise [None]
  - Memory impairment [None]
  - Musculoskeletal stiffness [None]
  - Pain [None]

NARRATIVE: CASE EVENT DATE: 20220128
